FAERS Safety Report 5189936-4 (Version None)
Quarter: 2006Q4

REPORT INFORMATION
  Report Type: 
  Country: None (occurrence: None)
  Receive Date: 20061218
  Receipt Date: 20061205
  Transmission Date: 20070319
  Serious: Yes (Other)
  Sender: FDA-Public Use
  Company Number: GXKR2006JP07972

PATIENT
  Age: 62 Year
  Sex: Male

DRUGS (10)
  1. DIGOXIN [Suspect]
     Indication: DRUG USE FOR UNKNOWN INDICATION
     Dosage: 0.25 MG, QD, ORAL
     Route: 048
  2. FLUCONAZOLE [Concomitant]
  3. ITRACONAZOLE [Concomitant]
  4. LEVOTHYROXINE SODIUM [Concomitant]
  5. WARFARIN SODIUM [Concomitant]
  6. CANDESARTAN CILEXETIL (CANDESARTAN CILEXETIL) [Concomitant]
  7. ISOSORBIDE DINITRATE [Concomitant]
  8. FUROSEMIDE [Concomitant]
  9. LANSOPRAZOLE [Concomitant]
  10. FERROUS CITRATE [Concomitant]

REACTIONS (15)
  - ANOSMIA [None]
  - CARDIOACTIVE DRUG LEVEL ABOVE THERAPEUTIC [None]
  - CONDITION AGGRAVATED [None]
  - DYSGEUSIA [None]
  - HYPOGEUSIA [None]
  - OPTIC NERVE DISORDER [None]
  - OPTIC NEURITIS [None]
  - OPTIC NEURITIS RETROBULBAR [None]
  - OVERDOSE [None]
  - PAROSMIA [None]
  - PHOTOPHOBIA [None]
  - SINUSITIS [None]
  - THERAPEUTIC AGENT TOXICITY [None]
  - VISUAL DISTURBANCE [None]
  - XANTHOPSIA [None]
